FAERS Safety Report 17120647 (Version 1)
Quarter: 2019Q4

REPORT INFORMATION
  Report Type: Report from Study
  Country: US (occurrence: US)
  Receive Date: 20191206
  Receipt Date: 20191206
  Transmission Date: 20200122
  Serious: Yes (Death)
  Sender: FDA-Public Use
  Company Number: US-ROCHE-2490406

PATIENT
  Sex: Female

DRUGS (2)
  1. AVASTIN [Suspect]
     Active Substance: BEVACIZUMAB
     Dosage: INFUSE 1100MG INTRAVENOUSLY EVERY 3 WEEK(S)
     Route: 042
  2. AVASTIN [Suspect]
     Active Substance: BEVACIZUMAB
     Indication: OVARIAN CANCER
     Dosage: INFUSE 1100MG INTRAVENOUSLY EVERY 3 WEEKS
     Route: 042

REACTIONS (1)
  - Death [Fatal]
